FAERS Safety Report 16545186 (Version 1)
Quarter: 2019Q3

REPORT INFORMATION
  Report Type: Spontaneous
  Country: CA (occurrence: CA)
  Receive Date: 20190709
  Receipt Date: 20190709
  Transmission Date: 20191004
  Serious: Yes (Other)
  Sender: FDA-Public Use
  Company Number: CA-TEVA-2019-CA-1073140

PATIENT
  Age: 58 Year
  Sex: Female

DRUGS (10)
  1. AMLODIPINE BESILATE [Suspect]
     Active Substance: AMLODIPINE BESYLATE
     Indication: PRODUCT USED FOR UNKNOWN INDICATION
     Dosage: 5 MILLIGRAM DAILY;
     Route: 048
  2. PANTOPRAZOLE [Suspect]
     Active Substance: PANTOPRAZOLE
     Indication: PRODUCT USED FOR UNKNOWN INDICATION
     Route: 065
  3. APO-GLICLAZIDE [Concomitant]
     Active Substance: GLICLAZIDE
     Route: 065
  4. SYNTHROID [Concomitant]
     Active Substance: LEVOTHYROXINE SODIUM
     Dosage: .025 MILLIGRAM DAILY;
     Route: 048
  5. FOSINOPRIL SODIUM. [Concomitant]
     Active Substance: FOSINOPRIL SODIUM
     Dosage: 20 MILLIGRAM DAILY;
     Route: 048
  6. METFORMIN HYDROCHLORIDE/SAXAGLIPTIN HYDROCHLORIDE [Concomitant]
     Dosage: 5 MILLIGRAM DAILY;
     Route: 065
  7. OXYCODONE HYDROCHLORIDE. [Suspect]
     Active Substance: OXYCODONE HYDROCHLORIDE
     Indication: PRODUCT USED FOR UNKNOWN INDICATION
     Route: 065
  8. AFINITOR [Suspect]
     Active Substance: EVEROLIMUS
     Indication: PRODUCT USED FOR UNKNOWN INDICATION
     Dosage: 10 MILLIGRAM DAILY;
     Route: 048
  9. SANDOSTATIN [Suspect]
     Active Substance: OCTREOTIDE ACETATE
     Route: 058
  10. SANDOSTATIN [Suspect]
     Active Substance: OCTREOTIDE ACETATE
     Indication: CARCINOID TUMOUR
     Route: 030

REACTIONS (38)
  - Dry skin [Recovering/Resolving]
  - Faeces discoloured [Recovering/Resolving]
  - Flatulence [Recovering/Resolving]
  - Nervousness [Recovering/Resolving]
  - Steatorrhoea [Recovering/Resolving]
  - Constipation [Recovering/Resolving]
  - Fatigue [Recovering/Resolving]
  - Influenza like illness [Recovering/Resolving]
  - Muscular weakness [Recovering/Resolving]
  - Abdominal pain upper [Recovering/Resolving]
  - Drug hypersensitivity [Recovering/Resolving]
  - Musculoskeletal pain [Recovering/Resolving]
  - Dizziness [Recovering/Resolving]
  - Frequent bowel movements [Recovering/Resolving]
  - Headache [Recovering/Resolving]
  - Malignant neoplasm progression [Recovering/Resolving]
  - Oedema peripheral [Recovering/Resolving]
  - Psoriasis [Recovering/Resolving]
  - Abdominal distension [Recovering/Resolving]
  - Blood pressure increased [Recovering/Resolving]
  - Diarrhoea [Recovering/Resolving]
  - Dry mouth [Recovering/Resolving]
  - Hypotension [Recovering/Resolving]
  - Acne [Recovering/Resolving]
  - Back pain [Recovering/Resolving]
  - Influenza [Recovering/Resolving]
  - Oral herpes [Recovering/Resolving]
  - Abdominal pain [Recovering/Resolving]
  - Blood pressure systolic increased [Recovering/Resolving]
  - Nasal congestion [Recovering/Resolving]
  - Vomiting [Recovering/Resolving]
  - Body temperature decreased [Recovering/Resolving]
  - Flushing [Recovering/Resolving]
  - Hot flush [Recovering/Resolving]
  - Hyperglycaemia [Recovering/Resolving]
  - Muscle spasms [Recovering/Resolving]
  - Myalgia [Recovering/Resolving]
  - Somnolence [Recovering/Resolving]
